FAERS Safety Report 24056682 (Version 8)
Quarter: 2025Q1

REPORT INFORMATION
  Report Type: Spontaneous
  Country: US (occurrence: US)
  Receive Date: 20240705
  Receipt Date: 20250218
  Transmission Date: 20250409
  Serious: No
  Sender: MERCK SHARP & DOHME LLC
  Company Number: US-009507513-2406USA008915

PATIENT
  Sex: Female
  Weight: 88.4 kg

DRUGS (48)
  1. WINREVAIR [Suspect]
     Active Substance: SOTATERCEPT-CSRK
     Indication: Product used for unknown indication
     Dates: start: 202406
  2. WINREVAIR [Suspect]
     Active Substance: SOTATERCEPT-CSRK
     Dates: start: 2024
  3. REMODULIN [Suspect]
     Active Substance: TREPROSTINIL
     Indication: Pulmonary arterial hypertension
     Route: 041
     Dates: start: 20220221
  4. ADEMPAS [Concomitant]
     Active Substance: RIOCIGUAT
     Indication: Product used for unknown indication
     Dosage: DOSE DESCRIPTION : 0.5 MILLIGRAM, TID?DAILY DOSE : 1.5 MILLIGRAM
     Dates: end: 202408
  5. FISH OIL [Concomitant]
     Active Substance: FISH OIL
  6. VITAMINS NOS [Concomitant]
     Active Substance: VITAMINS
     Route: 048
  7. VITAMIN B COMPLEX [Concomitant]
     Active Substance: CYANOCOBALAMIN\DEXPANTHENOL\NIACINAMIDE\PYRIDOXINE HYDROCHLORIDE\RIBOFLAVIN 5^-PHOSPHATE SODIUM\THIA
  8. UPTRAVI [Concomitant]
     Active Substance: SELEXIPAG
  9. MAGNESIUM OXIDE [Concomitant]
     Active Substance: MAGNESIUM OXIDE
  10. POTASSIUM CHLORIDE [Concomitant]
     Active Substance: POTASSIUM CHLORIDE
  11. OPSUMIT [Concomitant]
     Active Substance: MACITENTAN
  12. SELENIUM [Concomitant]
     Active Substance: SELENIUM
  13. METAMUCIL [Concomitant]
     Active Substance: PLANTAGO SEED
  14. PFIZER-BIONTECH COVID-19 VACCINE [Concomitant]
     Active Substance: TOZINAMERAN
  15. LASIX [Concomitant]
     Active Substance: FUROSEMIDE
  16. ARNICA AESCULUS [Concomitant]
  17. DIETARY SUPPLEMENT\UBIDECARENONE [Concomitant]
     Active Substance: DIETARY SUPPLEMENT\UBIDECARENONE
  18. VITAMIN D3 [Concomitant]
     Active Substance: CHOLECALCIFEROL
  19. VALERIANA OFFICINALIS ROOT [Concomitant]
     Active Substance: VALERIAN
  20. LEVOTHYROXINE SODIUM [Concomitant]
     Active Substance: LEVOTHYROXINE SODIUM
  21. MECLIZINE HYDROCHLORIDE [Concomitant]
     Active Substance: MECLIZINE HYDROCHLORIDE
  22. NOW NAC [Concomitant]
  23. TRIPLE OMEGA COMPLEX 3-6-9 [Concomitant]
  24. VELETRI [Concomitant]
     Active Substance: EPOPROSTENOL
  25. SPIRONOLACTONE [Concomitant]
     Active Substance: SPIRONOLACTONE
  26. BIFIDOBACTERIUM ANIMALIS LACTIS [Concomitant]
     Active Substance: BIFIDOBACTERIUM ANIMALIS LACTIS
  27. MUPIROCIN [Concomitant]
     Active Substance: MUPIROCIN
  28. OXYGEN [Concomitant]
     Active Substance: OXYGEN
  29. CALCIUM CARBONATE [Concomitant]
     Active Substance: CALCIUM CARBONATE
     Indication: Dyspepsia
  30. OSTEO BI-FLEX EASE [Concomitant]
  31. PROGESTERONE [Concomitant]
     Active Substance: PROGESTERONE
  32. OMEGA 3 ULTRA [Concomitant]
  33. D 400 [Concomitant]
  34. ADCIRCA [Concomitant]
     Active Substance: TADALAFIL
  35. FAMOTIDINE [Concomitant]
     Active Substance: FAMOTIDINE
  36. DIETARY SUPPLEMENT\HERBALS\MILK THISTLE [Concomitant]
     Active Substance: MILK THISTLE
  37. LACTOBACILLUS ACIDOPHILUS [Concomitant]
     Active Substance: LACTOBACILLUS ACIDOPHILUS
  38. ELIQUIS [Concomitant]
     Active Substance: APIXABAN
  39. serenol [Concomitant]
  40. MOMETASONE FUROATE [Concomitant]
     Active Substance: MOMETASONE FUROATE
  41. AYR [Concomitant]
  42. CALCIUM\CHOLECALCIFEROL [Concomitant]
     Active Substance: CALCIUM\CHOLECALCIFEROL
  43. SACCHAROMYCES CEREVISIAE [Concomitant]
     Active Substance: SACCHAROMYCES CEREVISIAE
  44. TIZANIDINE [Concomitant]
     Active Substance: TIZANIDINE
  45. MIRENA [Concomitant]
     Active Substance: LEVONORGESTREL
  46. CRATAEGUS LAEVIGATA FRUIT [Concomitant]
     Active Substance: CRATAEGUS LAEVIGATA FRUIT
  47. TRIAMCINOLONE ACETONIDE [Concomitant]
     Active Substance: TRIAMCINOLONE ACETONIDE
  48. PRILOSEC [Concomitant]
     Active Substance: OMEPRAZOLE MAGNESIUM

REACTIONS (15)
  - Platelet count decreased [Unknown]
  - Diarrhoea [Not Recovered/Not Resolved]
  - Head discomfort [Unknown]
  - Oedema [Unknown]
  - Pain in extremity [Unknown]
  - Dyspepsia [Not Recovered/Not Resolved]
  - Nausea [Recovering/Resolving]
  - Insomnia [Unknown]
  - Fatigue [Unknown]
  - Nasal congestion [Unknown]
  - Weight increased [Unknown]
  - Injection site erythema [Unknown]
  - Injection site rash [Unknown]
  - Product preparation issue [Unknown]
  - Syringe issue [Unknown]

NARRATIVE: CASE EVENT DATE: 20240101
